FAERS Safety Report 7669474-7 (Version None)
Quarter: 2011Q3

REPORT INFORMATION
  Report Type: 
  Country: None (occurrence: None)
  Receive Date: 20110808
  Receipt Date: 20110805
  Transmission Date: 20111222
  Serious: Yes (Life-Threatening, Hospitalization)
  Sender: FDA-Public Use
  Company Number: JP-PFIZER INC-2011145660

PATIENT
  Age: 81 Year
  Sex: Male

DRUGS (5)
  1. PLETAL [Concomitant]
     Indication: CEREBRAL INFARCTION
     Dosage: 100 MG, 1X/DAY
     Dates: end: 20110622
  2. ATELEC [Suspect]
     Indication: HYPERTENSION
     Dosage: 10 MG, 2X/DAY
     Route: 048
     Dates: start: 20110406, end: 20110622
  3. DIOVAN HCT [Concomitant]
     Indication: HYPERTENSION
     Dosage: 1 DF, 1X/DAY
  4. DOXAZOSIN MESYLATE [Suspect]
     Indication: HYPERTENSION
     Dosage: 1 MG, 2X/DAY
     Route: 048
     Dates: start: 20110409, end: 20110622
  5. EBASTINE [Concomitant]
     Indication: ECZEMA
     Dosage: 10 MG, 1X/DAY
     Route: 048

REACTIONS (2)
  - THROMBOCYTOPENIA [None]
  - CEREBRAL INFARCTION [None]
